FAERS Safety Report 22070060 (Version 1)
Quarter: 2023Q1

REPORT INFORMATION
  Report Type: Spontaneous
  Country: US (occurrence: US)
  Receive Date: 20230307
  Receipt Date: 20230307
  Transmission Date: 20230417
  Serious: No
  Sender: FDA-Public Use
  Company Number: US-AMNEAL PHARMACEUTICALS-2022-AMRX-02826

PATIENT
  Sex: Female

DRUGS (1)
  1. RYTARY [Interacting]
     Active Substance: CARBIDOPA\LEVODOPA
     Indication: Parkinson^s disease
     Dosage: 1 CAPSULES, (36.25-145MG) TID
     Route: 048

REACTIONS (2)
  - Movement disorder [Unknown]
  - Drug interaction [Unknown]
